FAERS Safety Report 8841640 (Version 1)
Quarter: 2012Q4

REPORT INFORMATION
  Report Type: 
  Country: DE (occurrence: DE)
  Receive Date: 20121015
  Receipt Date: 20121015
  Transmission Date: 20130627
  Serious: Yes (Death)
  Sender: FDA-Public Use
  Company Number: DE-B.I. PHARMACEUTICALS,INC./RIDGEFIELD-2012-DE-02448DE

PATIENT

DRUGS (1)
  1. PRADAXA [Suspect]
     Indication: PROPHYLAXIS
     Dates: start: 2011

REACTIONS (1)
  - Haemorrhage [Fatal]
